FAERS Safety Report 9837116 (Version 1)
Quarter: 2013Q4

REPORT INFORMATION
  Report Type: Spontaneous
  Country: US (occurrence: None)
  Receive Date: 20131205
  Receipt Date: 20131205
  Transmission Date: 20140711
  Serious: Yes (Other)
  Sender: FDA-Public Use
  Company Number: 163-POMAL-13083737

PATIENT
  Age: 49 Year
  Sex: Male
  Weight: 106 kg

DRUGS (8)
  1. POMALYST [Suspect]
     Indication: PLASMA CELL MYELOMA
     Dosage: 4 MG, 1 IN 1 D, PO
     Route: 048
     Dates: start: 20130411
  2. CARBAMAZEPINE (CARBAMAZEPINE) (TABLETS) [Concomitant]
  3. EPIPEN (EPINEPHRINE) (INJECTION) [Concomitant]
  4. TEGRETOL (CARBAMAZEPINE) (CHEWABLE TABLET) [Concomitant]
  5. ZOMETA (ZOLEDRONIC ACID) (INJECTION) [Concomitant]
  6. TEMAZEPAM (TEMAZEPAM) (CAPSULES) [Concomitant]
  7. HYDROCODONE-ACETAMINOPHEN (VICODIN) (UNKNOWN) [Concomitant]
  8. CALCIUM 600 +D (LEKOVIT CA) (TABLETS) [Concomitant]

REACTIONS (1)
  - Gastric disorder [None]
